FAERS Safety Report 18330811 (Version 3)
Quarter: 2020Q4

REPORT INFORMATION
  Report Type: Spontaneous
  Country: US (occurrence: US)
  Receive Date: 20200930
  Receipt Date: 20201204
  Transmission Date: 20210113
  Serious: No
  Sender: FDA-Public Use
  Company Number: US-JNJFOC-20200948459

PATIENT
  Sex: Male

DRUGS (1)
  1. DARZALEX [Suspect]
     Active Substance: DARATUMUMAB
     Indication: PLASMA CELL MYELOMA
     Route: 065

REACTIONS (6)
  - Nephropathy [Unknown]
  - Platelet count decreased [Unknown]
  - Mineral supplementation [Unknown]
  - Haemoglobin decreased [Unknown]
  - Anaemia [Unknown]
  - White blood cell count decreased [Unknown]
